FAERS Safety Report 23878354 (Version 3)
Quarter: 2024Q4

REPORT INFORMATION
  Report Type: Spontaneous
  Country: FR (occurrence: FR)
  Receive Date: 20240521
  Receipt Date: 20241111
  Transmission Date: 20250115
  Serious: Yes (Other)
  Sender: SANDOZ
  Company Number: FR-002147023-NVSC2021FR072562

PATIENT
  Age: 3 Year
  Sex: Female
  Weight: 16.6 kg

DRUGS (38)
  1. ADALIMUMAB [Suspect]
     Active Substance: ADALIMUMAB
     Indication: Still^s disease
     Dosage: UNKNOWN
     Route: 065
  2. ALEMTUZUMAB [Suspect]
     Active Substance: ALEMTUZUMAB
     Indication: Still^s disease
     Dosage: 0.5 MG/KG
     Route: 065
  3. ALEMTUZUMAB [Suspect]
     Active Substance: ALEMTUZUMAB
     Indication: Bone marrow conditioning regimen
     Route: 065
  4. ALEMTUZUMAB [Suspect]
     Active Substance: ALEMTUZUMAB
     Dosage: UNK
     Route: 065
  5. ANAKINRA [Suspect]
     Active Substance: ANAKINRA
     Indication: Still^s disease
     Route: 065
  6. ANAKINRA [Suspect]
     Active Substance: ANAKINRA
     Route: 065
  7. ANAKINRA [Suspect]
     Active Substance: ANAKINRA
     Route: 065
  8. ANAKINRA [Suspect]
     Active Substance: ANAKINRA
     Route: 065
  9. BUSULFAN [Suspect]
     Active Substance: BUSULFAN
     Indication: Bone marrow conditioning regimen
     Dosage: AUC OF 25,638 MICROM/MIN
     Route: 065
  10. CYCLOPHOSPHAMIDE [Suspect]
     Active Substance: CYCLOPHOSPHAMIDE
     Indication: Prophylaxis against graft versus host disease
     Dosage: ON DAY +3 AND +4
     Route: 065
  11. CYCLOPHOSPHAMIDE [Suspect]
     Active Substance: CYCLOPHOSPHAMIDE
     Indication: Prophylaxis against graft versus host disease
  12. CYCLOSPORINE [Suspect]
     Active Substance: CYCLOSPORINE
     Dosage: UNK
     Route: 065
  13. CYCLOSPORINE [Suspect]
     Active Substance: CYCLOSPORINE
     Indication: Prophylaxis against graft versus host disease
     Dosage: UNK ON DAY 5
     Route: 065
  14. FLUDARABINE [Suspect]
     Active Substance: FLUDARABINE PHOSPHATE
     Indication: Still^s disease
     Dosage: 160 MG/M2
     Route: 065
  15. FLUDARABINE PHOSPHATE [Suspect]
     Active Substance: FLUDARABINE PHOSPHATE
     Indication: Bone marrow conditioning regimen
     Dosage: UNK
     Route: 065
  16. INDOMETHACIN [Suspect]
     Active Substance: INDOMETHACIN
     Indication: Still^s disease
     Dosage: 25 MG/M2, QD
     Route: 065
  17. INFLIXIMAB [Suspect]
     Active Substance: INFLIXIMAB
     Indication: Product used for unknown indication
     Dosage: 75 MG/ 4 WEEKS
     Route: 065
  18. INFLIXIMAB [Suspect]
     Active Substance: INFLIXIMAB
     Dosage: FOR GRADE III GASTROINTESTINAL GVHD
     Route: 065
  19. METHOTREXATE [Suspect]
     Active Substance: METHOTREXATE
     Indication: Still^s disease
     Dosage: 5 MG/WEEK
     Route: 065
  20. MYCOPHENOLATE MOFETIL [Suspect]
     Active Substance: MYCOPHENOLATE MOFETIL
     Dosage: UNK
     Route: 065
  21. MYCOPHENOLATE MOFETIL [Suspect]
     Active Substance: MYCOPHENOLATE MOFETIL
     Indication: Prophylaxis against graft versus host disease
     Dosage: UNK ON DAY 5
     Route: 065
  22. MYCOPHENOLATE MOFETIL [Suspect]
     Active Substance: MYCOPHENOLATE MOFETIL
     Dosage: ON DAY 5
     Route: 065
  23. METHYLPREDNISOLONE [Suspect]
     Active Substance: METHYLPREDNISOLONE
     Indication: Prophylaxis
     Route: 065
  24. PENICILLIN V POTASSIUM [Suspect]
     Active Substance: PENICILLIN V POTASSIUM
     Indication: Prophylaxis
     Dosage: UNKNOWN
     Route: 065
  25. PENICILLIN V POTASSIUM [Suspect]
     Active Substance: PENICILLIN V POTASSIUM
     Dosage: UNKNOWN
     Route: 065
  26. PENICILLIN V POTASSIUM [Suspect]
     Active Substance: PENICILLIN V POTASSIUM
     Dosage: UNKNOWN
     Route: 065
  27. PENICILLIN V POTASSIUM [Suspect]
     Active Substance: PENICILLIN V POTASSIUM
     Dosage: UNKNOWN
     Route: 065
  28. PREDNISOLONE [Suspect]
     Active Substance: PREDNISOLONE
     Indication: Product used for unknown indication
     Dosage: 1 MG/KG PER DAY, TAPERED
     Route: 065
  29. PREDNISOLONE [Suspect]
     Active Substance: PREDNISOLONE
     Dosage: 2 MG/KG, QD
     Route: 065
  30. RITUXIMAB [Suspect]
     Active Substance: RITUXIMAB
     Indication: Still^s disease
     Dosage: 375 MG/M2
     Route: 065
  31. THALIDOMIDE [Suspect]
     Active Substance: THALIDOMIDE
     Indication: Still^s disease
     Dosage: 50 MG/DAY
     Route: 065
  32. THALIDOMIDE [Suspect]
     Active Substance: THALIDOMIDE
     Dosage: 50 MG/DAY
     Route: 065
  33. ACYCLOVIR [Concomitant]
     Active Substance: ACYCLOVIR
     Indication: Prophylaxis against graft versus host disease
     Route: 065
  34. BUSULFAN [Concomitant]
     Active Substance: BUSULFAN
     Indication: Prophylaxis against graft versus host disease
     Dosage: AUC OF 25,638 MICROM/MIN
     Route: 065
  35. CANAKINUMAB [Concomitant]
     Active Substance: CANAKINUMAB
     Indication: Prophylaxis against graft versus host disease
     Route: 065
  36. FLUDARABINE [Concomitant]
     Active Substance: FLUDARABINE PHOSPHATE
     Indication: Product used for unknown indication
     Dosage: 160 MG/M2
     Route: 065
  37. HYDROCORTISONE [Concomitant]
     Active Substance: HYDROCORTISONE
     Indication: Bone marrow conditioning regimen
     Route: 065
  38. TOCILIZUMAB [Concomitant]
     Active Substance: TOCILIZUMAB
     Indication: Product used for unknown indication
     Route: 065

REACTIONS (43)
  - Graft versus host disease in gastrointestinal tract [Recovered/Resolved]
  - Osteopenia [Unknown]
  - Toxicity to various agents [Unknown]
  - Congenital aplasia [Unknown]
  - Still^s disease [Recovering/Resolving]
  - Ill-defined disorder [Unknown]
  - Vitiligo [Unknown]
  - Growth retardation [Recovering/Resolving]
  - Hypothyroidism [Unknown]
  - C-reactive protein increased [Unknown]
  - Condition aggravated [Unknown]
  - Congenital aplasia [Recovered/Resolved]
  - Lung disorder [Recovered/Resolved]
  - Immune thrombocytopenia [Recovering/Resolving]
  - Pulmonary function test abnormal [Recovered/Resolved]
  - Impaired quality of life [Unknown]
  - Red blood cell sedimentation rate increased [Unknown]
  - Inflammation [Unknown]
  - Graft versus host disease in skin [Recovering/Resolving]
  - Autoimmune thyroiditis [Unknown]
  - Secondary adrenocortical insufficiency [Unknown]
  - Joint effusion [Recovered/Resolved]
  - Hepatic cytolysis [Unknown]
  - Acute graft versus host disease in skin [Recovering/Resolving]
  - Obliterative bronchiolitis [Unknown]
  - Cushingoid [Unknown]
  - Graft versus host disease in skin [Recovering/Resolving]
  - Focal nodular hyperplasia [Unknown]
  - Varicella zoster virus infection [Unknown]
  - Cellulitis staphylococcal [Unknown]
  - Arthralgia [Unknown]
  - Herpes zoster [Unknown]
  - Clostridium difficile colitis [Recovered/Resolved]
  - Herpes zoster infection neurological [Unknown]
  - Bacterial sepsis [Unknown]
  - Actinomycotic sepsis [Unknown]
  - Thrombocytopenia [Unknown]
  - Hypertension [Unknown]
  - Infection [Unknown]
  - Product use in unapproved indication [Unknown]
  - Off label use [Unknown]
  - Off label use [Unknown]
  - Off label use [Unknown]
